FAERS Safety Report 9822224 (Version 1)
Quarter: 2014Q1

REPORT INFORMATION
  Report Type: Spontaneous
  Country: NO (occurrence: NO)
  Receive Date: 20140116
  Receipt Date: 20140116
  Transmission Date: 20141002
  Serious: Yes (Other)
  Sender: FDA-Public Use
  Company Number: NO-BAXTER-2014BAX001335

PATIENT
  Age: 28 Year
  Sex: Male

DRUGS (3)
  1. METRONIDAZOL BAXTER VIAFLO 5 MG/ML INFUSJONSV?SKE, OPPL?SNING [Suspect]
     Indication: ANTIBIOTIC PROPHYLAXIS
     Dosage: BEFORE SURGERY
     Route: 042
     Dates: start: 20131216, end: 20131216
  2. GENTAMICIN B. BRAUN [Suspect]
     Indication: ANTIBIOTIC PROPHYLAXIS
     Dosage: BEFORE SURGERY
     Route: 042
     Dates: start: 20131216, end: 20131216
  3. DOXYCYCLINE [Suspect]
     Indication: ANTIBIOTIC PROPHYLAXIS
     Dosage: BEFORE SURGERY
     Route: 042
     Dates: start: 20131216, end: 20131216

REACTIONS (1)
  - Anaphylactic reaction [Recovered/Resolved]
